FAERS Safety Report 7704697-X (Version None)
Quarter: 2011Q3

REPORT INFORMATION
  Report Type: 
  Country: None (occurrence: None)
  Receive Date: 20110823
  Receipt Date: 20110815
  Transmission Date: 20111222
  Serious: Yes (Other)
  Sender: FDA-Public Use
  Company Number: US-ASTRAZENECA-2011SE49044

PATIENT
  Age: 809 Month
  Sex: Female

DRUGS (12)
  1. POT CL MICRO [Concomitant]
  2. SODIUM BICARBONATE [Concomitant]
  3. LEVAQUIN [Concomitant]
  4. DOXYCYCLINE HCL [Concomitant]
  5. LEVETIRACETAM [Concomitant]
  6. LORAZEPAM [Concomitant]
  7. PROCHLORPERAZINE [Concomitant]
  8. LISINOPRIL [Suspect]
     Route: 048
  9. HYDROCHLOROTHIAZIDE [Concomitant]
  10. FAMOTIDINE [Concomitant]
  11. HYDROCODONE BITARTRATE AND ACETAMINOPHEN [Concomitant]
     Dosage: 5-500 MG
  12. DEXAMETHASONE [Concomitant]

REACTIONS (1)
  - CENTRAL NERVOUS SYSTEM LYMPHOMA [None]
